FAERS Safety Report 9964431 (Version 3)
Quarter: 2014Q2

REPORT INFORMATION
  Report Type: Spontaneous
  Country: US (occurrence: US)
  Receive Date: 20140305
  Receipt Date: 20140425
  Transmission Date: 20141212
  Serious: Yes (Other)
  Sender: FDA-Public Use
  Company Number: CHPA2013US005331

PATIENT
  Sex: Female

DRUGS (2)
  1. EXCEDRIN EXTRA STRENGTH [Suspect]
     Dosage: UNK
     Route: 048
  2. EXCEDRIN MIGRAINE [Suspect]

REACTIONS (2)
  - Sinusitis [Not Recovered/Not Resolved]
  - Therapeutic response decreased [Unknown]
